FAERS Safety Report 7470275-3 (Version None)
Quarter: 2011Q2

REPORT INFORMATION
  Report Type: 
  Country: None (occurrence: None)
  Receive Date: 20110510
  Receipt Date: 20110417
  Transmission Date: 20111010
  Serious: Yes (Disabling, Other)
  Sender: FDA-Public Use
  Company Number: CZ-BAYER-2011-033356

PATIENT
  Age: 51 Year
  Sex: Female

DRUGS (1)
  1. NEXAVAR [Suspect]
     Indication: RENAL CANCER

REACTIONS (3)
  - OEDEMA PERIPHERAL [None]
  - SKIN EXFOLIATION [None]
  - ARTHRALGIA [None]
